FAERS Safety Report 19084518 (Version 1)
Quarter: 2021Q2

REPORT INFORMATION
  Report Type: Spontaneous
  Country: US (occurrence: US)
  Receive Date: 20210401
  Receipt Date: 20210401
  Transmission Date: 20210717
  Serious: Yes (Hospitalization)
  Sender: FDA-Public Use
  Company Number: US-UNICHEM PHARMACEUTICALS (USA) INC-UCM202103-000294

PATIENT
  Age: 12 Year
  Sex: Male

DRUGS (4)
  1. BACLOFEN. [Suspect]
     Active Substance: BACLOFEN
  2. BACLOFEN. [Suspect]
     Active Substance: BACLOFEN
     Indication: QUADRIPLEGIA
     Dosage: BASAL RATE OF 28 MICROGRAM PER HOUR WITH A 75?MICROGRAM BOLUS
     Route: 037
  3. BACLOFEN. [Suspect]
     Active Substance: BACLOFEN
     Dosage: 10 PERCENT INCREASE IN FLEX DOSING (820 MICROG/D).
  4. BACLOFEN. [Suspect]
     Active Substance: BACLOFEN

REACTIONS (10)
  - Toxicity to various agents [Unknown]
  - Accidental exposure to product [Unknown]
  - Respiratory depression [Recovered/Resolved]
  - Mental status changes [Recovered/Resolved]
  - Mydriasis [Recovered/Resolved]
  - Overdose [Unknown]
  - Areflexia [Recovered/Resolved]
  - Hypotension [Recovered/Resolved]
  - Seizure [Recovered/Resolved]
  - Coma [Recovered/Resolved]
